FAERS Safety Report 9803101 (Version 1)
Quarter: 2014Q1

REPORT INFORMATION
  Report Type: Spontaneous
  Country: US (occurrence: None)
  Receive Date: 20140107
  Receipt Date: 20140107
  Transmission Date: 20141002
  Serious: Yes (Disabling)
  Sender: FDA-Public Use
  Company Number: None

PATIENT
  Age: 38 Year
  Sex: Female
  Weight: 67.13 kg

DRUGS (1)
  1. CIPROFLOXACIN [Suspect]
     Indication: CYSTITIS
     Dosage: 2 PER DAY  7 DAYS  TWICE DAILY  TAKEN BY MOUTH
     Route: 048
     Dates: start: 20131128, end: 20131203

REACTIONS (10)
  - Vision blurred [None]
  - Eye pain [None]
  - Dry eye [None]
  - Tendon pain [None]
  - Arthralgia [None]
  - Myalgia [None]
  - Asthenia [None]
  - Headache [None]
  - Neuropathy peripheral [None]
  - Heart rate increased [None]
